FAERS Safety Report 17866931 (Version 3)
Quarter: 2020Q2

REPORT INFORMATION
  Report Type: Report from Study
  Country: CA (occurrence: CA)
  Receive Date: 20200605
  Receipt Date: 20200615
  Transmission Date: 20200714
  Serious: Yes (Hospitalization, Other)
  Sender: FDA-Public Use
  Company Number: CA-BRISTOL-MYERS SQUIBB COMPANY-BMS-2020-042273

PATIENT
  Age: 20 Year
  Sex: Female

DRUGS (1)
  1. ABATACEPT [Suspect]
     Active Substance: ABATACEPT
     Indication: JUVENILE IDIOPATHIC ARTHRITIS
     Dosage: 500 MILLIGRAM, QMO
     Route: 042
     Dates: start: 20150213

REACTIONS (4)
  - White blood cell count decreased [Recovering/Resolving]
  - Neutropenia [Unknown]
  - Clostridium test positive [Recovering/Resolving]
  - Oral infection [Recovering/Resolving]

NARRATIVE: CASE EVENT DATE: 20200530
